FAERS Safety Report 5779613-0 (Version None)
Quarter: 2008Q2

REPORT INFORMATION
  Report Type: 
  Country: None (occurrence: None)
  Receive Date: 20080619
  Receipt Date: 20070605
  Transmission Date: 20081010
  Serious: No
  Sender: FDA-Public Use
  Company Number: US-ASTRAZENECA-2007UW13559

PATIENT
  Sex: Female

DRUGS (1)
  1. ATACAND HCT [Suspect]
     Dosage: 16/12.5
     Route: 048
     Dates: start: 20060101

REACTIONS (2)
  - BLOOD GLUCOSE INCREASED [None]
  - WEIGHT INCREASED [None]
